FAERS Safety Report 16861561 (Version 3)
Quarter: 2019Q4

REPORT INFORMATION
  Report Type: Report from Study
  Country: US (occurrence: US)
  Receive Date: 20190927
  Receipt Date: 20191021
  Transmission Date: 20200122
  Serious: Yes (Hospitalization, Other)
  Sender: FDA-Public Use
  Company Number: PHHO2018US011455

PATIENT
  Age: 16 Year
  Sex: Male
  Weight: 76 kg

DRUGS (10)
  1. GSK2118436 [Suspect]
     Active Substance: DABRAFENIB
     Dosage: UNK
     Route: 048
     Dates: start: 20190927
  2. GSK2118436 [Suspect]
     Active Substance: DABRAFENIB
     Dosage: 150 MG, BID
     Route: 048
     Dates: start: 20181024
  3. ALBUTEROL HFA [Concomitant]
     Active Substance: ALBUTEROL SULFATE
     Indication: ASTHMA
     Dosage: 90 UG, PRN
     Route: 055
     Dates: start: 20180613
  4. CLONAZEPAM. [Concomitant]
     Active Substance: CLONAZEPAM
     Indication: ANXIETY
     Dosage: 1 MG, BID
     Route: 048
     Dates: start: 20180815
  5. GSK2118436 [Suspect]
     Active Substance: DABRAFENIB
     Indication: GLIOMA
     Dosage: 150 MG, BID
     Route: 048
     Dates: start: 20181011, end: 20181021
  6. GSK1120212 [Suspect]
     Active Substance: TRAMETINIB
     Indication: GLIOMA
     Dosage: 2 MG, QD
     Route: 048
     Dates: start: 20181011, end: 20181021
  7. GSK1120212 [Suspect]
     Active Substance: TRAMETINIB
     Dosage: 2 MG, QD
     Route: 048
     Dates: start: 20181024
  8. GSK1120212 [Suspect]
     Active Substance: TRAMETINIB
     Dosage: UNK
     Route: 048
     Dates: start: 20190927
  9. OXYCARBAZEPINA [Concomitant]
     Indication: EPILEPSY
     Dosage: 600 MG, BID
     Route: 048
     Dates: start: 20180613
  10. LACOSAMIDE. [Concomitant]
     Active Substance: LACOSAMIDE
     Indication: FOCAL DYSCOGNITIVE SEIZURES
     Dosage: 200 MG, QD
     Route: 048
     Dates: start: 20180713

REACTIONS (3)
  - Hypotension [Recovered/Resolved]
  - Partial seizures [Recovered/Resolved]
  - Pyrexia [Recovered/Resolved]

NARRATIVE: CASE EVENT DATE: 20181021
